FAERS Safety Report 6130767-6 (Version None)
Quarter: 2009Q1

REPORT INFORMATION
  Report Type: 
  Country: None (occurrence: None)
  Receive Date: 20090323
  Receipt Date: 20090311
  Transmission Date: 20090719
  Serious: Yes (Other)
  Sender: FDA-Public Use
  Company Number: A-US2009-24161

PATIENT
  Age: 7 Year
  Sex: Female

DRUGS (5)
  1. TRACLEER [Suspect]
     Indication: PULMONARY ARTERIAL HYPERTENSION
     Dosage: 15.625 MG, BID, ORAL, 31.25 MG, BID, ORAL, 46.875 MG OD, ORAL
     Route: 048
     Dates: start: 20020223, end: 20050719
  2. TRACLEER [Suspect]
     Indication: PULMONARY ARTERIAL HYPERTENSION
     Dosage: 15.625 MG, BID, ORAL, 31.25 MG, BID, ORAL, 46.875 MG OD, ORAL
     Route: 048
     Dates: start: 20050720, end: 20051115
  3. TRACLEER [Suspect]
     Indication: PULMONARY ARTERIAL HYPERTENSION
     Dosage: 15.625 MG, BID, ORAL, 31.25 MG, BID, ORAL, 46.875 MG OD, ORAL
     Route: 048
     Dates: start: 20051116
  4. COUMADIN [Concomitant]
  5. VIAGRA [Concomitant]

REACTIONS (4)
  - LEARNING DISABILITY [None]
  - MITRAL VALVE INCOMPETENCE [None]
  - MITRAL VALVE PROLAPSE [None]
  - SYNCOPE [None]
